FAERS Safety Report 7493345-2 (Version None)
Quarter: 2011Q2

REPORT INFORMATION
  Report Type: 
  Country: None (occurrence: None)
  Receive Date: 20110520
  Receipt Date: 20110516
  Transmission Date: 20111010
  Serious: Yes (Hospitalization, Other)
  Sender: FDA-Public Use
  Company Number: US-PFIZER INC-2011043251

PATIENT
  Sex: Male

DRUGS (1)
  1. CHANTIX [Suspect]
     Indication: SMOKING CESSATION THERAPY
     Dosage: UNK
     Dates: start: 20080801, end: 20080907

REACTIONS (7)
  - NAUSEA [None]
  - ANXIETY [None]
  - HEADACHE [None]
  - SUICIDE ATTEMPT [None]
  - IRRITABILITY [None]
  - ABNORMAL DREAMS [None]
  - INTENTIONAL OVERDOSE [None]
